FAERS Safety Report 18341302 (Version 1)
Quarter: 2020Q4

REPORT INFORMATION
  Report Type: Spontaneous
  Country: FR (occurrence: FR)
  Receive Date: 20201003
  Receipt Date: 20201003
  Transmission Date: 20210113
  Serious: Yes (Hospitalization)
  Sender: FDA-Public Use
  Company Number: FR-TEVA-2020-FR-1834463

PATIENT
  Age: 82 Year
  Sex: Female
  Weight: 64 kg

DRUGS (5)
  1. ZOPICLONE [Concomitant]
     Active Substance: ZOPICLONE
     Dosage: 7.5MG
     Route: 048
  2. NATRIXAM 1,5 MG/5 MG, COMPRIMEAA LIBERATION MODIFIEE [Suspect]
     Active Substance: AMLODIPINE\INDAPAMIDE
     Indication: HYPERTENSION
     Dosage: 1DF
     Route: 048
     Dates: end: 20200703
  3. STRESAM, GELULE [Concomitant]
     Active Substance: ETIFOXINE HYDROCHLORIDE
     Dosage: 200MG
     Route: 048
  4. COLECALCIFEROL [Concomitant]
     Active Substance: CHOLECALCIFEROL
     Dosage: 100000IU
     Route: 048
  5. PANTOPRAZOLE [Suspect]
     Active Substance: PANTOPRAZOLE
     Indication: GASTROOESOPHAGEAL REFLUX DISEASE
     Dosage: UNIT DOSE 20MG
     Route: 048
     Dates: end: 20200703

REACTIONS (5)
  - Hyponatraemia [Recovered/Resolved]
  - Hypochloraemia [Recovered/Resolved]
  - Hypocalcaemia [Unknown]
  - Condition aggravated [Recovered/Resolved]
  - Hypokalaemia [Recovered/Resolved]

NARRATIVE: CASE EVENT DATE: 20200627
